FAERS Safety Report 4934991-7 (Version None)
Quarter: 2006Q1

REPORT INFORMATION
  Report Type: 
  Country: None (occurrence: None)
  Receive Date: 20060127
  Receipt Date: 20051222
  Transmission Date: 20060701
  Serious: Yes (Other)
  Sender: FDA-Public Use
  Company Number: 2005172775

PATIENT
  Age: 38 Year
  Sex: Female
  Weight: 60.782 kg

DRUGS (6)
  1. LYRICA [Suspect]
     Indication: NEURALGIA
     Dosage: 150 MG (75 MG, 2 IN 1 D)
  2. ALPRAZOLAM [Concomitant]
  3. FLEXERIL [Concomitant]
  4. VICODIN [Concomitant]
  5. AMBIEN [Concomitant]
  6. LEXAPRO [Concomitant]

REACTIONS (1)
  - WEIGHT INCREASED [None]
